FAERS Safety Report 9338693 (Version 1)
Quarter: 2013Q2

REPORT INFORMATION
  Report Type: Spontaneous
  Country: ES (occurrence: ES)
  Receive Date: 20130610
  Receipt Date: 20130610
  Transmission Date: 20140414
  Serious: Yes (Other)
  Sender: FDA-Public Use
  Company Number: ES-ACCORD-017969

PATIENT
  Age: 43 Year
  Sex: Female
  Weight: 60 kg

DRUGS (3)
  1. HERCEPTIN [Concomitant]
     Dosage: CONT.
     Route: 042
     Dates: start: 20130313
  2. PACLITAXEL [Suspect]
     Indication: BREAST CANCER
     Route: 042
     Dates: start: 20130313, end: 20130424
  3. LEXATIN [Concomitant]
     Indication: ANXIETY
     Dosage: AS NEEDED, CONT.
     Route: 048
     Dates: start: 20130410

REACTIONS (6)
  - Pruritus [Recovering/Resolving]
  - Rash generalised [Recovering/Resolving]
  - Eczema [Recovering/Resolving]
  - Dermatitis acneiform [Recovering/Resolving]
  - Infusion site scar [Unknown]
  - Erythema [Recovering/Resolving]
